FAERS Safety Report 14835572 (Version 2)
Quarter: 2018Q2

REPORT INFORMATION
  Report Type: Spontaneous
  Country: FR (occurrence: IT)
  Receive Date: 20180502
  Receipt Date: 20180607
  Transmission Date: 20180711
  Serious: Yes (Other)
  Sender: FDA-Public Use
  Company Number: FR-ACCORD-066367

PATIENT
  Age: 89 Year
  Sex: Female

DRUGS (4)
  1. DIGOXIN. [Interacting]
     Active Substance: DIGOXIN
     Indication: TACHYARRHYTHMIA
     Dosage: 0.125 MG, DAILY
     Route: 048
  2. FUROSEMIDE. [Suspect]
     Active Substance: FUROSEMIDE
     Indication: TACHYARRHYTHMIA
     Route: 065
  3. APIXABAN [Interacting]
     Active Substance: APIXABAN
     Indication: CEREBROVASCULAR ACCIDENT PROPHYLAXIS
     Dosage: 2.5 MG, BID
     Route: 065
  4. AMIODARONE [Interacting]
     Active Substance: AMIODARONE
     Indication: ATRIAL FIBRILLATION
     Route: 065
     Dates: start: 2000

REACTIONS (7)
  - Cardiac failure [Unknown]
  - Toxicity to various agents [Unknown]
  - Orthopnoea [Unknown]
  - Overdose [Unknown]
  - Tachyarrhythmia [Unknown]
  - Dyspnoea [Unknown]
  - Drug interaction [Unknown]
